FAERS Safety Report 9868168 (Version 1)
Quarter: 2014Q1

REPORT INFORMATION
  Report Type: Report from Study
  Country: TW (occurrence: TW)
  Receive Date: 20140204
  Receipt Date: 20140204
  Transmission Date: 20141002
  Serious: No
  Sender: FDA-Public Use
  Company Number: PHHY2014TW012729

PATIENT
  Age: 83 Year
  Sex: Male

DRUGS (83)
  1. AMN107 [Suspect]
     Dosage: 800 MG, UNK
     Dates: start: 20111216, end: 20111225
  2. AMN107 [Suspect]
     Dosage: 200 MG, UNK
     Dates: start: 20120109, end: 20120126
  3. AMN107 [Suspect]
     Dosage: 400 MG, UNK
     Dates: start: 20120127, end: 20120711
  4. AMN107 [Suspect]
     Dosage: 600 MG, UNK
     Dates: start: 20120712, end: 20120905
  5. AMN107 [Suspect]
     Dosage: 800 MG, UNK
     Dates: start: 20120906
  6. KCL [Concomitant]
     Indication: METABOLIC ALKALOSIS
     Dates: start: 20111230, end: 20120103
  7. ACETAMINOPHEN [Concomitant]
     Indication: PYREXIA
     Dates: start: 20111226, end: 20111226
  8. ACETYLSALICYLIC ACID [Concomitant]
     Indication: THROMBOSIS PROPHYLAXIS
     Dates: start: 20111226
  9. ACETYLSALICYLIC ACID [Concomitant]
     Dates: start: 20120419
  10. ALLOPURINOL [Concomitant]
     Indication: HYPERURICAEMIA
     Dates: start: 20120906
  11. AMLODIPINE [Concomitant]
     Indication: HYPERTENSION
     Dates: start: 20111228, end: 20111228
  12. AMOXICILLIN [Concomitant]
     Indication: PNEUMONIA
     Dates: start: 20111226, end: 20120102
  13. ASPIRIN [Concomitant]
     Indication: THROMBOSIS PROPHYLAXIS
     Dates: start: 20120108, end: 20120419
  14. ATORVASTATIN [Concomitant]
     Indication: HYPERCHOLESTEROLAEMIA
     Dates: start: 20121129
  15. BENZBROMARONE [Concomitant]
     Indication: HYPERURICAEMIA
     Dates: start: 20111226, end: 20111226
  16. BENZONATATE [Concomitant]
     Indication: COUGH
     Dates: start: 20130419, end: 20130502
  17. BROMHEXINE [Concomitant]
     Indication: PHARYNGITIS
     Dates: start: 20120622, end: 20120625
  18. BROMHEXINE [Concomitant]
     Indication: COUGH
     Dates: start: 20120712, end: 20120809
  19. BROMHEXINE [Concomitant]
     Dates: start: 20130419, end: 20130502
  20. BROMHEXINE [Concomitant]
     Indication: COUGH
     Dates: start: 20120316, end: 20120809
  21. BROWN MIXTURE                      /01682301/ [Concomitant]
     Indication: PHARYNGITIS
     Dates: start: 20120622, end: 20120625
  22. C.T.M. [Concomitant]
     Indication: PRURITUS
     Dates: start: 20120111, end: 20120126
  23. C.T.M. [Concomitant]
     Indication: URTICARIA
     Dates: start: 20120615, end: 20120706
  24. C.T.M. [Concomitant]
     Indication: RANULA
     Dates: start: 20121127, end: 20121225
  25. C.T.M. [Concomitant]
     Dates: start: 20130718, end: 20130721
  26. CEFTRIAXONE [Concomitant]
     Indication: PNEUMONIA
     Dates: start: 20111225, end: 20111226
  27. CEPHALEXIN [Concomitant]
     Indication: SKIN ULCER
     Dates: start: 20130806, end: 20130820
  28. CETIRIZINE [Concomitant]
     Indication: URTICARIA
     Dates: start: 20120712, end: 20121101
  29. CETIRIZINE [Concomitant]
     Dates: start: 20130918, end: 20131016
  30. CHLORPHENIRAMIN [Concomitant]
     Indication: PREMEDICATION
     Dates: start: 20111226, end: 20111226
  31. CHLORPHENIRAMIN [Concomitant]
     Indication: PRURITUS
     Dates: start: 20111227, end: 20111227
  32. CHLORPHENIRAMIN [Concomitant]
     Indication: RANULA
     Dates: start: 20111228, end: 20111228
  33. CHLORPHENIRAMIN [Concomitant]
     Indication: URTICARIA
     Dates: start: 20120110, end: 20120110
  34. CHLORPHENIRAMIN [Concomitant]
     Dates: start: 20120203, end: 20120203
  35. CHLORPHENIRAMIN [Concomitant]
     Dates: start: 20120330, end: 20120330
  36. CHLORPHENIRAMIN [Concomitant]
     Dates: start: 20120518, end: 20120518
  37. CHLORPHENIRAMIN [Concomitant]
     Dates: start: 20130716, end: 20130716
  38. CHLORPHENIRAMIN [Concomitant]
     Dates: start: 20130718, end: 20130718
  39. CHLORPHENIRAMIN [Concomitant]
     Dates: start: 20131016, end: 20131016
  40. CLOBETASOL [Concomitant]
     Indication: ECZEMA
     Dates: start: 20120615, end: 20120706
  41. CLOBETASOL [Concomitant]
     Dates: start: 20121127, end: 20121225
  42. CLOPIDOGREL [Concomitant]
     Indication: MYOCARDIAL INFARCTION
     Dates: start: 20111226, end: 20111228
  43. CLOTRIMAZOLE [Concomitant]
     Indication: PRURITUS
     Dates: start: 20120111
  44. CLOTRIMAZOLE [Concomitant]
     Indication: URTICARIA
  45. DESLORATADINE [Concomitant]
     Indication: URTICARIA
     Dates: start: 20121101, end: 20130503
  46. DICLOFENAC POTASSIUM [Concomitant]
     Indication: PHARYNGITIS
     Dates: start: 20120622, end: 20120625
  47. DIFLUCORTOLONE [Concomitant]
     Indication: ECZEMA
     Dates: start: 20120615
  48. DOXAZOSIN [Concomitant]
     Indication: HYPERTENSION
     Dates: start: 20120419
  49. RENITEC                                 /NET/ [Concomitant]
     Indication: HYPERTENSION
     Dates: start: 20111226
  50. FEXOFENADINE [Concomitant]
     Indication: URTICARIA
     Dates: start: 20120420
  51. FUROSEMIDE [Concomitant]
     Indication: PLEURAL EFFUSION
     Dates: start: 20111225
  52. FUSIDIC ACID [Concomitant]
     Indication: SKIN ULCER
     Dates: start: 20130806, end: 20130820
  53. HYDROCORTISONE [Concomitant]
     Indication: PREMEDICATION
     Dates: start: 20111227, end: 20111227
  54. HYDROCORTISONE [Concomitant]
     Indication: WHEEZING
     Dates: start: 20111230, end: 20111230
  55. HYDROCORTISONE [Concomitant]
     Indication: RANULA
     Dates: start: 20120203, end: 20120203
  56. HYDROCORTISONE [Concomitant]
     Dates: start: 20120330, end: 20120330
  57. HYDROCORTISONE [Concomitant]
     Dates: start: 20120518, end: 20120518
  58. HYDROCORTISONE [Concomitant]
     Dates: start: 20130718, end: 20130718
  59. HYDROCORTISONE [Concomitant]
     Dates: start: 20130718, end: 20130718
  60. ISOSORBIDE DINITRATE [Concomitant]
     Indication: MYOCARDIAL INFARCTION
     Dates: start: 20111225, end: 20120419
  61. LEVOCETIRIZINE [Concomitant]
     Indication: RANULA
     Dates: start: 20130718, end: 20130721
  62. LORAZEPAM [Concomitant]
     Indication: INSOMNIA
     Dates: start: 20120104, end: 20120105
  63. LORAZEPAM [Concomitant]
     Dates: start: 20120111, end: 20120117
  64. MAGNESIUM OXIDE [Concomitant]
     Indication: CONSTIPATION
     Dates: start: 20111229, end: 20111231
  65. MAGNESIUM OXIDE [Concomitant]
     Dates: start: 20130121, end: 20130218
  66. METOCLOPRAMIDE [Concomitant]
     Indication: CONSTIPATION
     Dates: start: 20120108, end: 20120128
  67. METOLAZONE [Concomitant]
     Indication: PLEURAL EFFUSION
     Dates: start: 20111226, end: 20111226
  68. MIDAZOLAM [Concomitant]
     Indication: SEDATIVE THERAPY
     Dates: start: 20111226, end: 20111226
  69. MIDAZOLAM [Concomitant]
     Indication: SEDATION
     Dates: start: 20111227, end: 20111228
  70. MORPHINE [Concomitant]
     Indication: PLEURAL EFFUSION
     Dates: start: 20111226, end: 20111226
  71. MOSAPRIDE [Concomitant]
     Indication: CONSTIPATION
     Dates: start: 20130121, end: 20130218
  72. NIFLEC [Concomitant]
     Indication: PREMEDICATION
     Dates: start: 20121220, end: 20121220
  73. POTASSIUM CITRATE [Concomitant]
     Indication: METABOLIC ACIDOSIS
     Dates: start: 20111230, end: 20111230
  74. POTASSIUM CHLORIDE [Concomitant]
     Indication: PROPHYLAXIS
     Dates: start: 20111230, end: 20111230
  75. PREDNISOLONE [Concomitant]
     Indication: RANULA
     Dates: start: 20130718, end: 20130721
  76. SENNOSIDE [Concomitant]
     Indication: CONSTIPATION
     Dates: start: 20130503, end: 20130520
  77. SODIUM PHOSPHATE MONOBASIC [Concomitant]
     Indication: CONSTIPATION
     Dates: start: 20120109, end: 20120109
  78. SPIRONOLACTONE [Concomitant]
     Indication: PLEURAL EFFUSION
     Dates: start: 20111231, end: 20120101
  79. TAMSULOSIN [Concomitant]
     Indication: BENIGN PROSTATIC HYPERPLASIA
     Dates: start: 20121130, end: 20130503
  80. TAMSULOSIN HYDROCHLORIDE [Concomitant]
     Indication: BENIGN PROSTATIC HYPERPLASIA
     Dates: start: 20120118, end: 20120419
  81. TRIAMCINOLONE [Concomitant]
     Indication: RANULA
     Dates: start: 20130716, end: 20130729
  82. COMBIVENT UDV [Concomitant]
     Indication: WHEEZING
     Dates: start: 20111226, end: 20111226
  83. UREA [Concomitant]
     Indication: ECZEMA
     Dates: start: 20120615, end: 20120706

REACTIONS (1)
  - Influenza [Unknown]
